FAERS Safety Report 9592867 (Version 2)
Quarter: 2013Q4

REPORT INFORMATION
  Report Type: Spontaneous
  Country: JP (occurrence: JP)
  Receive Date: 20131004
  Receipt Date: 20131004
  Transmission Date: 20140711
  Serious: Yes (Other)
  Sender: FDA-Public Use
  Company Number: JP-NOVOPROD-388643

PATIENT
  Sex: Male

DRUGS (2)
  1. NOVORAPID 30 MIX CHU FLEXPEN [Suspect]
     Indication: DIABETES MELLITUS
     Route: 058
  2. NOVORAPID 30 MIX CHU FLEXPEN [Suspect]

REACTIONS (2)
  - Suicide attempt [Unknown]
  - Intentional overdose [Unknown]
